FAERS Safety Report 4580165-1 (Version None)
Quarter: 2005Q1

REPORT INFORMATION
  Report Type: 
  Country: None (occurrence: None)
  Receive Date: 20050214
  Receipt Date: 20050207
  Transmission Date: 20050727
  Serious: Yes (Hospitalization)
  Sender: FDA-Public Use
  Company Number: DE-JNJFOC-20050202143

PATIENT
  Sex: Male

DRUGS (6)
  1. DURAGESIC [Suspect]
     Indication: NEUROPATHIC PAIN
     Route: 062
  2. DURAGESIC [Suspect]
     Indication: OSTEOMYELITIS
     Route: 062
  3. KETEK [Interacting]
     Indication: OSTEOMYELITIS
     Route: 049
  4. SIRDALUD [Concomitant]
     Indication: MUSCLE SPASMS
     Route: 049
  5. VALORON [Concomitant]
     Route: 049
  6. VALORON [Concomitant]
     Indication: PAIN
     Route: 049

REACTIONS (4)
  - DELUSION [None]
  - DIZZINESS [None]
  - DRUG INTERACTION [None]
  - MUSCULAR WEAKNESS [None]
